FAERS Safety Report 11010965 (Version 2)
Quarter: 2015Q2

REPORT INFORMATION
  Report Type: Spontaneous
  Country: PL (occurrence: PL)
  Receive Date: 20150410
  Receipt Date: 20150427
  Transmission Date: 20150821
  Serious: Yes (Other)
  Sender: FDA-Public Use
  Company Number: PL-BAXTER-2015BAX018051

PATIENT
  Sex: Male

DRUGS (1)
  1. KIOVIG [Suspect]
     Active Substance: HUMAN IMMUNOGLOBULIN G
     Indication: MULTIFOCAL MOTOR NEUROPATHY
     Route: 065

REACTIONS (1)
  - Colon cancer [Unknown]

NARRATIVE: CASE EVENT DATE: 2015
